FAERS Safety Report 9782611 (Version 4)
Quarter: 2014Q1

REPORT INFORMATION
  Report Type: Report from Study
  Country: JP (occurrence: JP)
  Receive Date: 20131226
  Receipt Date: 20140218
  Transmission Date: 20141002
  Serious: Yes (Death)
  Sender: FDA-Public Use
  Company Number: JP-PFIZER INC-2013272326

PATIENT
  Age: 67 Year
  Sex: Male
  Weight: 82 kg

DRUGS (5)
  1. NOVASTAN [Suspect]
     Indication: HEPARIN-INDUCED THROMBOCYTOPENIA
     Dosage: 0.7 MCG/KG/MIN
     Route: 041
     Dates: start: 20130702, end: 20130903
  2. HEPARIN SODIUM [Concomitant]
     Indication: DIALYSIS
     Dosage: UNK
     Route: 051
     Dates: start: 20130525
  3. GASTER [Concomitant]
     Indication: PROPHYLAXIS
     Dosage: 40 MG, UNK
     Route: 042
     Dates: start: 20130525
  4. NEO-MINOPHAGEN C [Concomitant]
     Dosage: 40 MG, DAILY
     Route: 042
     Dates: start: 20130527
  5. CATABON [Concomitant]
     Dosage: 600 MG, DAILY
     Route: 042
     Dates: start: 20130527

REACTIONS (3)
  - Duodenal perforation [Fatal]
  - Prothrombin time prolonged [Not Recovered/Not Resolved]
  - Activated partial thromboplastin time prolonged [Not Recovered/Not Resolved]
